FAERS Safety Report 11941217 (Version 4)
Quarter: 2016Q1

REPORT INFORMATION
  Report Type: Report from Study
  Country: US (occurrence: US)
  Receive Date: 20160122
  Receipt Date: 20160318
  Transmission Date: 20160526
  Serious: Yes (Hospitalization, Other)
  Sender: FDA-Public Use
  Company Number: PHEH2016US001630

PATIENT
  Age: 28 Year
  Sex: Male
  Weight: 108.84 kg

DRUGS (1)
  1. ILARIS [Suspect]
     Active Substance: CANAKINUMAB
     Indication: JUVENILE IDIOPATHIC ARTHRITIS
     Dosage: 300 MG, (EVERY 4 WEEK)
     Route: 058

REACTIONS (17)
  - Abdominal pain [Recovered/Resolved]
  - Atelectasis [Unknown]
  - Haematocrit decreased [Unknown]
  - Inappropriate schedule of drug administration [Unknown]
  - Pyrexia [Recovered/Resolved]
  - Tumour necrosis factor receptor-associated periodic syndrome [Unknown]
  - White blood cell count increased [Unknown]
  - Pleural effusion [Unknown]
  - Dyspnoea [Unknown]
  - Renal atrophy [Unknown]
  - Chest pain [Unknown]
  - Diarrhoea [Recovered/Resolved]
  - Cardiomegaly [Unknown]
  - Enteritis [Recovered/Resolved]
  - Red blood cell count decreased [Unknown]
  - Haemoglobin decreased [Unknown]
  - Anuria [Unknown]

NARRATIVE: CASE EVENT DATE: 20160124
